FAERS Safety Report 26171733 (Version 1)
Quarter: 2025Q4

REPORT INFORMATION
  Report Type: Spontaneous
  Country: US (occurrence: US)
  Receive Date: 20251217
  Receipt Date: 20251217
  Transmission Date: 20260117
  Serious: No
  Sender: TAIHO ONCOLOGY INC
  Company Number: US-TAIHOP-2025-013241

PATIENT
  Age: 73 Year
  Sex: Female
  Weight: 67.2 kg

DRUGS (1)
  1. LONSURF [Suspect]
     Active Substance: TIPIRACIL HYDROCHLORIDE\TRIFLURIDINE
     Indication: Rectal cancer
     Dosage: FORM STRENGTH AND CYCLE UNKNOWN
     Route: 048
     Dates: start: 20250913

REACTIONS (1)
  - Inappropriate schedule of product administration [Unknown]
